FAERS Safety Report 4712985-4 (Version None)
Quarter: 2005Q3

REPORT INFORMATION
  Report Type: 
  Country: None (occurrence: None)
  Receive Date: 20050711
  Receipt Date: 20050628
  Transmission Date: 20060218
  Serious: Yes (Hospitalization, Other)
  Sender: FDA-Public Use
  Company Number: 2005093789

PATIENT
  Age: 81 Year
  Sex: Female

DRUGS (11)
  1. CELEBREX [Suspect]
     Indication: ILL-DEFINED DISORDER
     Dosage: 200 MG (200 MG, 1 IN 1 D), ORAL
     Route: 048
     Dates: start: 20050514, end: 20050603
  2. KARDEGIC (ACETYLSALICYLATE LYSINE) [Suspect]
     Indication: ILL-DEFINED DISORDER
     Dosage: 75 MG (75 MG, 1 IN 1 D), ORAL
     Route: 048
     Dates: end: 20050603
  3. COVERSYL (PERINDOPRIL) [Concomitant]
  4. LASIX [Concomitant]
  5. DITROPAN [Concomitant]
  6. FERROUS SULFATE TAB [Concomitant]
  7. CALCIUM D3 ^ ^STADA^ (CALCIUM, COLECALCIFEROL) [Concomitant]
  8. MACROGOL (MACROGOL) [Concomitant]
  9. TRAMADOL HCL [Concomitant]
  10. DOLIPRANE (PARACETAMOL) [Concomitant]
  11. MEPRONIZINE (ACEPROMETAZINE, MEPROBAMATE) [Concomitant]

REACTIONS (7)
  - DIARRHOEA [None]
  - GASTRIC CANCER [None]
  - GASTRITIS EROSIVE [None]
  - GASTROINTESTINAL HAEMORRHAGE [None]
  - HAEMOGLOBIN DECREASED [None]
  - MELAENA [None]
  - RECTAL HAEMORRHAGE [None]
